FAERS Safety Report 10247429 (Version 1)
Quarter: 2014Q1

REPORT INFORMATION
  Report Type: Spontaneous
  Country: US (occurrence: None)
  Receive Date: 20140306
  Receipt Date: 20140306
  Transmission Date: 20141002
  Serious: Yes (Disabling)
  Sender: FDA-Public Use
  Company Number: 163-21880-13033227

PATIENT
  Age: 52 Year
  Sex: Male

DRUGS (6)
  1. REVLIMID (LENALIDOMIDE) (25 MILLIGRAM, CAPSULES) [Suspect]
     Indication: PLASMA CELL MYELOMA
     Route: 048
     Dates: start: 20130208, end: 20130408
  2. VELCADE (BORTEZOMIB) [Suspect]
  3. ZOMETA (ZOLEDRONIC ACID) [Concomitant]
  4. BACTRIM [Concomitant]
  5. ACYCLOVIR [Concomitant]
  6. DECADRON (DEXAMETHASONE) [Concomitant]

REACTIONS (3)
  - Diarrhoea [None]
  - Gout [None]
  - Hypoaesthesia [None]
